FAERS Safety Report 6706140-6 (Version None)
Quarter: 2010Q2

REPORT INFORMATION
  Report Type: 
  Country: None (occurrence: None)
  Receive Date: 20100503
  Receipt Date: 20100422
  Transmission Date: 20101027
  Serious: Yes (Hospitalization)
  Sender: FDA-Public Use
  Company Number: FR-PFIZER INC-2010050808

PATIENT
  Age: 80 Year
  Sex: Female

DRUGS (13)
  1. TAHOR [Suspect]
     Indication: DYSLIPIDAEMIA
     Dosage: 10 MG, UNK
     Route: 048
     Dates: start: 20100226, end: 20100301
  2. TAHOR [Suspect]
     Dosage: 60 MG, UNK
     Dates: start: 20100301, end: 20100323
  3. ATHYMIL [Suspect]
     Dosage: 10 MG, 1X/DAY
     Route: 048
     Dates: start: 20100226, end: 20100301
  4. ATHYMIL [Suspect]
     Dosage: 60 MG, 1X/DAY
     Route: 048
     Dates: end: 20100323
  5. INIPOMP [Suspect]
     Indication: DYSLIPIDAEMIA
     Dosage: 20 MG, UNK
     Route: 048
     Dates: end: 20100323
  6. ALPRAZOLAM [Concomitant]
  7. PARACETAMOL [Concomitant]
  8. PROPOFAN [Concomitant]
  9. SOTALOL [Concomitant]
  10. BISOPROLOL [Concomitant]
  11. KARDEGIC [Concomitant]
  12. CARDIOCALM [Concomitant]
  13. MIRTAZAPINE [Concomitant]

REACTIONS (1)
  - CYTOLYTIC HEPATITIS [None]
